FAERS Safety Report 7294237-4 (Version None)
Quarter: 2011Q1

REPORT INFORMATION
  Report Type: 
  Country: None (occurrence: None)
  Receive Date: 20110215
  Receipt Date: 20110209
  Transmission Date: 20110831
  Serious: Yes (Hospitalization)
  Sender: FDA-Public Use
  Company Number: US-JNJCH-2011002034

PATIENT
  Age: 40 Year
  Sex: Male
  Weight: 88.5 kg

DRUGS (3)
  1. AFRIN [Concomitant]
     Indication: NASAL DISORDER
     Dosage: TEXT:UNKNOWN
     Route: 065
  2. LISINOPRIL [Concomitant]
     Indication: HYPERTENSION
     Dosage: TEXT:25MG ONCE DAILY
     Route: 048
  3. SUDAFED 24 HOUR TABLETS [Suspect]
     Indication: HYPERSENSITIVITY
     Dosage: TEXT:ONCE DAILY
     Route: 048
     Dates: start: 20101226, end: 20110103

REACTIONS (2)
  - ROAD TRAFFIC ACCIDENT [None]
  - TOXICOLOGIC TEST [None]
